FAERS Safety Report 8396036-9 (Version None)
Quarter: 2012Q2

REPORT INFORMATION
  Report Type: 
  Country: None (occurrence: None)
  Receive Date: 20120530
  Receipt Date: 20120524
  Transmission Date: 20120825
  Serious: Yes (Death)
  Sender: FDA-Public Use
  Company Number: US-PFIZER INC-2012126949

PATIENT

DRUGS (1)
  1. XYNTHA [Suspect]

REACTIONS (1)
  - COMPLETED SUICIDE [None]
